FAERS Safety Report 6781892-8 (Version None)
Quarter: 2010Q2

REPORT INFORMATION
  Report Type: 
  Country: None (occurrence: None)
  Receive Date: 20100621
  Receipt Date: 20100611
  Transmission Date: 20101027
  Serious: Yes (Life-Threatening)
  Sender: FDA-Public Use
  Company Number: GXKR2010GB06489

PATIENT
  Sex: Female
  Weight: 63.5 kg

DRUGS (10)
  1. VENLAFAXINE HCL [Suspect]
     Indication: ANXIETY
     Dosage: 75 MG, UNK
     Route: 048
     Dates: start: 20100101, end: 20100401
  2. VENLAFAXINE HCL [Suspect]
     Indication: EATING DISORDER
  3. LANSOPRAZOLE [Concomitant]
     Dosage: 15 MG, UNK
     Route: 048
  4. MACROGOL 3350 [Concomitant]
     Dosage: 1 DF, UNK
     Route: 048
  5. POTASSIUM CHLORIDE [Concomitant]
     Dosage: 1 DF, UNK
     Route: 048
  6. SODIUM CHLORIDE [Concomitant]
     Dosage: 1 DF, UNK
     Route: 048
  7. SODIUM BICARBONATE [Concomitant]
     Dosage: 1 DF, UNK
     Route: 048
  8. TRIMETHOPRIM [Concomitant]
     Indication: URINARY TRACT INFECTION
     Dosage: 200 MG, BID
     Route: 048
     Dates: start: 20100430
  9. ZOPICLONE [Concomitant]
     Dosage: 7.5 MG, UNK
     Route: 048
  10. ALCOHOL [Concomitant]

REACTIONS (3)
  - AMNESIA [None]
  - ROAD TRAFFIC ACCIDENT [None]
  - SOMNAMBULISM [None]
